FAERS Safety Report 17039244 (Version 6)
Quarter: 2020Q3

REPORT INFORMATION
  Report Type: Spontaneous
  Country: US (occurrence: US)
  Receive Date: 20191115
  Receipt Date: 20200706
  Transmission Date: 20201102
  Serious: No
  Sender: FDA-Public Use
  Company Number: US-SA-2019SA313240

PATIENT

DRUGS (5)
  1. METOPROLOL. [Concomitant]
     Active Substance: METOPROLOL
     Dosage: UNK (DOSE: 100)
  2. DUPIXENT [Suspect]
     Active Substance: DUPILUMAB
     Dosage: 300 MG, QOW
     Route: 058
     Dates: start: 20200128
  3. ASA [Concomitant]
     Active Substance: ASPIRIN
     Dosage: UNK
  4. QUETIAPINE. [Concomitant]
     Active Substance: QUETIAPINE
     Dosage: UNK
  5. DUPIXENT [Suspect]
     Active Substance: DUPILUMAB
     Indication: DERMATITIS ATOPIC
     Dosage: 300 MG, QOW
     Route: 058
     Dates: start: 201910

REACTIONS (16)
  - Prolapse repair [Unknown]
  - Product dose omission issue [Unknown]
  - Swelling [Unknown]
  - Skin exfoliation [Unknown]
  - Hysterectomy [Unknown]
  - Eye disorder [Unknown]
  - Oropharyngeal discomfort [Unknown]
  - Rash erythematous [Unknown]
  - Rhinorrhoea [Not Recovered/Not Resolved]
  - Lacrimation increased [Not Recovered/Not Resolved]
  - Erythema [Unknown]
  - Dermatitis atopic [Unknown]
  - Dry skin [Unknown]
  - Cough [Unknown]
  - Skin irritation [Unknown]
  - Oral discomfort [Unknown]

NARRATIVE: CASE EVENT DATE: 20191105
